FAERS Safety Report 10048846 (Version 1)
Quarter: 2014Q1

REPORT INFORMATION
  Report Type: Spontaneous
  Country: FR (occurrence: FR)
  Receive Date: 20140331
  Receipt Date: 20140331
  Transmission Date: 20141002
  Serious: Yes (Other)
  Sender: FDA-Public Use
  Company Number: FR-MYLANLABS-2014S1006322

PATIENT
  Age: 68 Year
  Sex: Male

DRUGS (4)
  1. BISOPROLOL [Suspect]
     Indication: CORONARY ANGIOPLASTY
     Route: 048
     Dates: start: 201004
  2. BISOPROLOL [Suspect]
     Indication: CORONARY ANGIOPLASTY
     Dates: start: 20140128
  3. COVERSYL [Suspect]
     Indication: CORONARY ANGIOPLASTY
     Route: 048
     Dates: start: 201004
  4. COVERSYL [Suspect]
     Indication: CORONARY ANGIOPLASTY
     Dates: start: 20140128

REACTIONS (4)
  - Medication error [Recovered/Resolved]
  - Headache [Recovered/Resolved]
  - Epistaxis [Recovered/Resolved]
  - Blood pressure increased [Recovered/Resolved]
